FAERS Safety Report 19597840 (Version 2)
Quarter: 2022Q2

REPORT INFORMATION
  Report Type: Report from Study
  Country: CA (occurrence: CA)
  Receive Date: 20210723
  Receipt Date: 20220420
  Transmission Date: 20220720
  Serious: Yes (Other)
  Sender: FDA-Public Use
  Company Number: None

PATIENT
  Age: 37 Year
  Sex: Female

DRUGS (2)
  1. METHOTREXATE [Suspect]
     Active Substance: METHOTREXATE
     Indication: Psoriatic arthropathy
     Route: 065
  2. HUMIRA [Concomitant]
     Active Substance: ADALIMUMAB
     Indication: Product used for unknown indication
     Dosage: SOLUTION SUBCUTANEOUS
     Route: 065

REACTIONS (8)
  - Drug ineffective [Unknown]
  - Arthralgia [Unknown]
  - Gait inability [Unknown]
  - Insomnia [Unknown]
  - Mental disorder [Unknown]
  - Pain [Unknown]
  - Condition aggravated [Unknown]
  - Psoriatic arthropathy [Unknown]
